FAERS Safety Report 5322816-X (Version None)
Quarter: 2007Q2

REPORT INFORMATION
  Report Type: 
  Country: None (occurrence: None)
  Receive Date: 20070221
  Receipt Date: 20060714
  Transmission Date: 20071010
  Serious: Yes (Other)
  Sender: FDA-Public Use
  Company Number: PHEH2006US09115

PATIENT
  Sex: Female

DRUGS (2)
  1. DIOVAN [Suspect]
  2. LOTREL [Suspect]

REACTIONS (2)
  - ANGIOEDEMA [None]
  - FACE OEDEMA [None]
